FAERS Safety Report 18936899 (Version 1)
Quarter: 2021Q1

REPORT INFORMATION
  Report Type: Spontaneous
  Country: CA (occurrence: CA)
  Receive Date: 20210225
  Receipt Date: 20210225
  Transmission Date: 20210420
  Serious: Yes (Other)
  Sender: FDA-Public Use
  Company Number: CA-ORION CORPORATION ORION PHARMA-21_00013322

PATIENT
  Age: 62 Year
  Sex: Male
  Weight: 78 kg

DRUGS (6)
  1. ALITRETINOIN [Concomitant]
     Active Substance: ALITRETINOIN
     Indication: CUTANEOUS T-CELL LYMPHOMA
     Route: 048
  2. MECHLORETHAMINE HYDROCHLORIDE [Suspect]
     Active Substance: MECHLORETHAMINE HYDROCHLORIDE
     Indication: CUTANEOUS T-CELL LYMPHOMA
     Route: 061
  3. INTRON A [Suspect]
     Active Substance: INTERFERON ALFA-2B
     Indication: CUTANEOUS T-CELL LYMPHOMA
     Route: 058
  4. METHOXSALEN. [Concomitant]
     Active Substance: METHOXSALEN
     Route: 065
  5. METHOTREXATE (TRADE NAME UNKNOWN) [Suspect]
     Active Substance: METHOTREXATE
     Indication: CUTANEOUS T-CELL LYMPHOMA
     Route: 048
  6. METHOXSALEN. [Concomitant]
     Active Substance: METHOXSALEN
     Dosage: 2 EVERY ONE WEEK
     Route: 048

REACTIONS (1)
  - Pancreatic carcinoma [Unknown]
